FAERS Safety Report 6945107-X (Version None)
Quarter: 2010Q3

REPORT INFORMATION
  Report Type: 
  Country: None (occurrence: None)
  Receive Date: 20100827
  Receipt Date: 20100826
  Transmission Date: 20110219
  Serious: Yes (Hospitalization)
  Sender: FDA-Public Use
  Company Number: FR-SANOFI-AVENTIS-2010SA050680

PATIENT
  Sex: Female

DRUGS (15)
  1. STILNOX [Suspect]
     Route: 048
     Dates: start: 20100125, end: 20100211
  2. BACTRIM DS [Suspect]
     Route: 048
     Dates: start: 20100204, end: 20100211
  3. LYRICA [Suspect]
     Route: 048
     Dates: start: 20100127, end: 20100211
  4. TRIMEBUTINE [Suspect]
     Route: 048
     Dates: start: 20100127, end: 20100211
  5. FORLAX [Suspect]
     Route: 048
     Dates: start: 20100125, end: 20100211
  6. DAFALGAN CODEINE [Suspect]
     Route: 048
     Dates: start: 20100127, end: 20100211
  7. SKENAN [Concomitant]
     Route: 042
     Dates: start: 20100125, end: 20100211
  8. MORPHINE [Concomitant]
     Route: 058
     Dates: start: 20100125, end: 20100211
  9. ESOMEPRAZOLE MAGNESIUM [Concomitant]
     Dates: start: 20100125
  10. ALPRAZOLAM [Concomitant]
     Dates: start: 20100125
  11. LOVENOX [Concomitant]
     Dates: start: 20100125
  12. KARDEGIC [Concomitant]
     Dates: start: 20100201
  13. LEVOFLOXACIN [Concomitant]
     Dates: start: 20100204
  14. ACUPAN [Concomitant]
     Dates: start: 20100204
  15. ZOFRAN [Concomitant]
     Dates: start: 20100209

REACTIONS (6)
  - AGRANULOCYTOSIS [None]
  - CHILLS [None]
  - HYPOTENSION [None]
  - LEUKOPENIA [None]
  - NEUTROPENIA [None]
  - PYREXIA [None]
